FAERS Safety Report 23264894 (Version 1)
Quarter: 2023Q4

REPORT INFORMATION
  Report Type: Spontaneous
  Country: US (occurrence: US)
  Receive Date: 20231206
  Receipt Date: 20231206
  Transmission Date: 20240110
  Serious: Yes (Hospitalization, Other)
  Sender: FDA-Public Use
  Company Number: US-APOTEX-2023AP017465

PATIENT
  Age: 36 Year
  Sex: Female

DRUGS (3)
  1. OFLOXACIN [Suspect]
     Active Substance: OFLOXACIN
     Indication: Rhinitis allergic
     Dosage: UNK
     Route: 047
  2. OFLOXACIN [Suspect]
     Active Substance: OFLOXACIN
     Indication: Condition aggravated
  3. OFLOXACIN [Suspect]
     Active Substance: OFLOXACIN
     Indication: Lacrimation increased

REACTIONS (1)
  - Stevens-Johnson syndrome [Recovered/Resolved]
